FAERS Safety Report 12605218 (Version 6)
Quarter: 2017Q1

REPORT INFORMATION
  Report Type: Spontaneous
  Country: US (occurrence: US)
  Receive Date: 20160729
  Receipt Date: 20170124
  Transmission Date: 20170428
  Serious: Yes (Other)
  Sender: FDA-Public Use
  Company Number: PHHY2016US103302

PATIENT
  Sex: Female
  Weight: 49.89 kg

DRUGS (3)
  1. ZOFRAN [Suspect]
     Active Substance: ONDANSETRON HYDROCHLORIDE
     Indication: VOMITING IN PREGNANCY
     Dosage: UNK UNK, QD
     Route: 048
     Dates: start: 200701, end: 200709
  2. ONDANSETRON [Suspect]
     Active Substance: ONDANSETRON
     Indication: VOMITING IN PREGNANCY
     Dosage: UNK UNK, PRN
     Route: 065
     Dates: start: 2007, end: 2012
  3. ZOFRAN ODT [Suspect]
     Active Substance: ONDANSETRON HYDROCHLORIDE
     Indication: VOMITING IN PREGNANCY
     Route: 048

REACTIONS (6)
  - Ureteric obstruction [Unknown]
  - Calculus urinary [Unknown]
  - Maternal exposure during pregnancy [Unknown]
  - Haemorrhoids [Unknown]
  - Menorrhagia [Unknown]
  - Product use issue [Unknown]
